FAERS Safety Report 14425844 (Version 4)
Quarter: 2018Q1

REPORT INFORMATION
  Report Type: Spontaneous
  Country: GB (occurrence: GB)
  Receive Date: 20180123
  Receipt Date: 20180227
  Transmission Date: 20180509
  Serious: Yes (Hospitalization, Other)
  Sender: FDA-Public Use
  Company Number: GB-TAKEDA-2018TUS001692

PATIENT
  Age: 59 Year
  Sex: Male
  Weight: 88 kg

DRUGS (12)
  1. BRINTELLIX [Suspect]
     Active Substance: VORTIOXETINE HYDROBROMIDE
     Indication: DEPRESSION
     Dosage: 5 MG, UNK
     Route: 048
     Dates: start: 2016
  2. AMLODIPINE [Concomitant]
     Active Substance: AMLODIPINE BESYLATE
     Indication: ESSENTIAL HYPERTENSION
     Dosage: 10 MG, QD
     Route: 048
  3. FLUOXETINE [Suspect]
     Active Substance: FLUOXETINE HYDROCHLORIDE
     Dosage: UNK
     Route: 065
  4. DAPAGLIFLOZIN. [Concomitant]
     Active Substance: DAPAGLIFLOZIN
     Indication: TYPE 2 DIABETES MELLITUS
     Dosage: 5 MG, QD
     Route: 065
  5. BRINTELLIX [Suspect]
     Active Substance: VORTIOXETINE HYDROBROMIDE
     Dosage: 10 MG, QD
     Route: 065
     Dates: start: 201701
  6. ATORVASTATIN [Concomitant]
     Active Substance: ATORVASTATIN
     Indication: CEREBROVASCULAR ACCIDENT
     Dosage: 40 MG, QD
     Route: 048
  7. METFORMIN [Concomitant]
     Active Substance: METFORMIN HYDROCHLORIDE
     Indication: TYPE 2 DIABETES MELLITUS
     Dosage: 1000 MG, BID
     Route: 065
  8. ALLOPURINOL. [Concomitant]
     Active Substance: ALLOPURINOL
     Indication: GOUT
     Dosage: 100 MG, QD
     Route: 048
  9. LANSOPRAZOLE. [Concomitant]
     Active Substance: LANSOPRAZOLE
     Indication: GOUT
     Dosage: 30 MG, QD
     Route: 048
  10. DOXAZOSIN [Concomitant]
     Active Substance: DOXAZOSIN\DOXAZOSIN MESYLATE
     Indication: ESSENTIAL HYPERTENSION
     Dosage: 8 MG, QD
     Route: 048
  11. FLUOXETINE [Suspect]
     Active Substance: FLUOXETINE HYDROCHLORIDE
     Indication: PRODUCT USED FOR UNKNOWN INDICATION
     Dosage: 40 MG, UNK
     Route: 065
     Dates: start: 2012, end: 20170109
  12. CLOPIDOGREL [Concomitant]
     Active Substance: CLOPIDOGREL BISULFATE
     Indication: CEREBROVASCULAR ACCIDENT
     Dosage: 75 MG, QD
     Route: 048

REACTIONS (4)
  - Diplopia [Recovered/Resolved]
  - Suicidal ideation [Unknown]
  - Paraesthesia [Unknown]
  - Nausea [Unknown]

NARRATIVE: CASE EVENT DATE: 20170317
